FAERS Safety Report 14263408 (Version 1)
Quarter: 2017Q4

REPORT INFORMATION
  Report Type: Report from Study
  Country: JP (occurrence: JP)
  Receive Date: 20171208
  Receipt Date: 20171208
  Transmission Date: 20180321
  Serious: Yes (Hospitalization)
  Sender: FDA-Public Use
  Company Number: JP-VIFOR (INTERNATIONAL) INC.-VIT-2017-13445

PATIENT
  Age: 58 Year
  Sex: Male

DRUGS (2)
  1. VELPHORO [Suspect]
     Active Substance: FERRIC OXYHYDROXIDE
     Indication: PRODUCT USED FOR UNKNOWN INDICATION
     Route: 048
  2. PHOSBLOCK [Concomitant]
     Active Substance: FERRIC HYDROXIDE

REACTIONS (1)
  - Lymphadenitis [Recovering/Resolving]

NARRATIVE: CASE EVENT DATE: 20171111
